FAERS Safety Report 7470323-0 (Version None)
Quarter: 2011Q2

REPORT INFORMATION
  Report Type: 
  Country: None (occurrence: None)
  Receive Date: 20110510
  Receipt Date: 20110502
  Transmission Date: 20111010
  Serious: Yes (Hospitalization)
  Sender: FDA-Public Use
  Company Number: US-GILEAD-2011-0035589

PATIENT
  Sex: Female

DRUGS (3)
  1. LETAIRIS [Suspect]
     Indication: PULMONARY HYPERTENSION
     Route: 048
     Dates: start: 20101103
  2. LETAIRIS [Suspect]
     Indication: LUNG DISORDER
  3. LETAIRIS [Suspect]
     Indication: PULMONARY FIBROSIS

REACTIONS (2)
  - DYSPNOEA [None]
  - PNEUMONIA [None]
